FAERS Safety Report 5211732-X (Version None)
Quarter: 2007Q1

REPORT INFORMATION
  Report Type: 
  Country: None (occurrence: None)
  Receive Date: 20070116
  Receipt Date: 20070109
  Transmission Date: 20070707
  Serious: Yes (Hospitalization, Other)
  Sender: FDA-Public Use
  Company Number: HQWYE882623MAY05

PATIENT
  Age: 42 Year
  Sex: Male
  Weight: 72.1 kg

DRUGS (18)
  1. RAPAMUNE [Suspect]
     Indication: PROPHYLAXIS AGAINST TRANSPLANT REJECTION
     Dosage: SEE IMAGE
     Route: 048
     Dates: start: 20050307, end: 20050308
  2. RAPAMUNE [Suspect]
     Indication: PROPHYLAXIS AGAINST TRANSPLANT REJECTION
     Dosage: SEE IMAGE
     Route: 048
     Dates: start: 20050309, end: 20050517
  3. RAPAMUNE [Suspect]
  4. MYCOPHENOLATE MOFETIL [Suspect]
     Indication: PROPHYLAXIS AGAINST TRANSPLANT REJECTION
     Dosage: SEE IMAGE
     Route: 048
     Dates: start: 20050307, end: 20050307
  5. MYCOPHENOLATE MOFETIL [Suspect]
     Indication: PROPHYLAXIS AGAINST TRANSPLANT REJECTION
     Dosage: SEE IMAGE
     Route: 048
     Dates: start: 20050308, end: 20050513
  6. MYCOPHENOLATE MOFETIL [Suspect]
     Indication: PROPHYLAXIS AGAINST TRANSPLANT REJECTION
     Dosage: SEE IMAGE
     Route: 048
     Dates: start: 20050514, end: 20050514
  7. MYCOPHENOLATE MOFETIL [Suspect]
     Indication: PROPHYLAXIS AGAINST TRANSPLANT REJECTION
     Dosage: SEE IMAGE
     Route: 048
     Dates: start: 20050515, end: 20050515
  8. PREDNISONE TAB [Suspect]
     Indication: PROPHYLAXIS AGAINST TRANSPLANT REJECTION
     Dosage: SEE IMAGE
     Route: 048
     Dates: start: 20050308, end: 20050308
  9. PREDNISONE TAB [Suspect]
     Indication: PROPHYLAXIS AGAINST TRANSPLANT REJECTION
     Dosage: SEE IMAGE
     Route: 048
     Dates: start: 20050309
  10. ZENAPAX [Suspect]
     Indication: PROPHYLAXIS AGAINST TRANSPLANT REJECTION
     Dosage: ORAL
     Route: 048
  11. NYSTATIN [Concomitant]
  12. ACYCLOVIR [Concomitant]
  13. BACTRIM [Concomitant]
  14. LANTUS [Concomitant]
  15. HUMALOG [Concomitant]
  16. LIPITOR [Concomitant]
  17. ATENOLOL [Concomitant]
  18. PROCARDIA [Concomitant]

REACTIONS (7)
  - BK VIRUS INFECTION [None]
  - DRUG INTOLERANCE [None]
  - KIDNEY TRANSPLANT REJECTION [None]
  - NAUSEA [None]
  - NEPHRITIS [None]
  - POLYOMAVIRUS-ASSOCIATED NEPHROPATHY [None]
  - SYNOVIAL CYST [None]
